FAERS Safety Report 8493536-8 (Version None)
Quarter: 2012Q3

REPORT INFORMATION
  Report Type: 
  Country: None (occurrence: None)
  Receive Date: 20120706
  Receipt Date: 20120627
  Transmission Date: 20120928
  Serious: Yes (Hospitalization, Other)
  Sender: FDA-Public Use
  Company Number: US-ASTRAZENECA-2012SE34372

PATIENT
  Age: 60 Year
  Sex: Male
  Weight: 113.4 kg

DRUGS (14)
  1. HEPARIN [Concomitant]
     Route: 058
  2. LOVAZA [Concomitant]
  3. PROTONIX [Concomitant]
  4. LISINOPRIL [Suspect]
     Route: 048
  5. GLUCOPHAGE [Concomitant]
  6. REGLAN [Concomitant]
  7. NITROSTAT [Concomitant]
     Route: 060
  8. ASPIRIN [Concomitant]
  9. CRESTOR [Suspect]
     Indication: HYPERLIPIDAEMIA
     Route: 048
  10. COREG [Concomitant]
  11. ANTIVERT [Concomitant]
  12. AMARYL [Concomitant]
  13. INSULIN TO SCALE [Concomitant]
  14. CATAPRES [Concomitant]
     Indication: HYPERTENSION

REACTIONS (13)
  - VERTIGO [None]
  - HYPERTENSION [None]
  - DIABETES MELLITUS INADEQUATE CONTROL [None]
  - DIPLOPIA [None]
  - HYPERHIDROSIS [None]
  - ARTERIOSCLEROSIS [None]
  - BRAIN STEM INFARCTION [None]
  - DYSPHAGIA [None]
  - HEMIPARESIS [None]
  - VOCAL CORD PARALYSIS [None]
  - CHILLS [None]
  - NAUSEA [None]
  - ASTHENIA [None]
